FAERS Safety Report 9476640 (Version 1)
Quarter: 2013Q3

REPORT INFORMATION
  Report Type: Spontaneous
  Country: IT (occurrence: IT)
  Receive Date: 20130826
  Receipt Date: 20130826
  Transmission Date: 20140515
  Serious: Yes (Hospitalization)
  Sender: FDA-Public Use
  Company Number: PHHY2013IT090738

PATIENT
  Sex: Male

DRUGS (3)
  1. RIBAVIRIN [Suspect]
     Indication: CHRONIC HEPATITIS C
     Dosage: 600 MG, QD
     Route: 048
     Dates: start: 20130522, end: 20130809
  2. TELAPREVIR [Suspect]
     Dosage: 1125 MG, QD
     Route: 048
     Dates: start: 20130522, end: 20130809
  3. PEGYLATED INTERFERON ALFA-2A [Suspect]
     Dosage: 180 UG, QW
     Route: 058
     Dates: start: 20130522, end: 20130808

REACTIONS (4)
  - Eosinophilia [Unknown]
  - Asthenia [Unknown]
  - Rash [Unknown]
  - Pyrexia [Unknown]
